FAERS Safety Report 15901932 (Version 3)
Quarter: 2019Q1

REPORT INFORMATION
  Report Type: Spontaneous
  Country: CZ (occurrence: CZ)
  Receive Date: 20190201
  Receipt Date: 20190313
  Transmission Date: 20190417
  Serious: Yes (Hospitalization, Other)
  Sender: FDA-Public Use
  Company Number: CZ-MYLANLABS-2018M1057917

PATIENT
  Age: 88 Year
  Sex: Male

DRUGS (23)
  1. QUETIAPINE MYLAN [Suspect]
     Active Substance: QUETIAPINE
     Dosage: 13 MILLIGRAM, UNK
     Route: 048
  2. RIVASTIGMIN [Concomitant]
     Active Substance: RIVASTIGMINE
     Indication: VASCULAR DEMENTIA
  3. RIVASTIGMIN [Concomitant]
     Active Substance: RIVASTIGMINE
     Indication: DYSPHORIA
  4. SERTRALIN [Concomitant]
     Active Substance: SERTRALINE HYDROCHLORIDE
     Indication: DELUSION
     Dosage: 100 MILLIGRAM, QD
  5. SERTRALIN [Concomitant]
     Active Substance: SERTRALINE HYDROCHLORIDE
     Indication: VASCULAR DEMENTIA
  6. METOPROLOL. [Concomitant]
     Active Substance: METOPROLOL
     Indication: HYPERTENSION
  7. PERINDOPRIL [Concomitant]
     Active Substance: PERINDOPRIL
     Indication: PRODUCT USED FOR UNKNOWN INDICATION
     Dosage: UNK
  8. SERTRALINE [Concomitant]
     Active Substance: SERTRALINE HYDROCHLORIDE
     Dosage: DAILY DOSE: 100 MG/DAY
  9. SERTRALIN [Concomitant]
     Active Substance: SERTRALINE HYDROCHLORIDE
     Indication: HALLUCINATION, VISUAL
  10. ACETYLSALICYLIC ACID [Concomitant]
     Active Substance: ASPIRIN
     Indication: PRODUCT USED FOR UNKNOWN INDICATION
  11. QUETIAPINE MYLAN [Suspect]
     Active Substance: QUETIAPINE
     Dosage: 100 MILLIGRAM, QD
     Route: 048
  12. RIVASTIGMIN [Concomitant]
     Active Substance: RIVASTIGMINE
     Indication: DELUSION
     Dosage: 12 MILLIGRAM, QD
  13. OXAZEPAM. [Suspect]
     Active Substance: OXAZEPAM
     Dosage: UNK
  14. RIVASTIGMIN [Concomitant]
     Active Substance: RIVASTIGMINE
     Indication: HALLUCINATION, VISUAL
  15. SIMVASTATIN. [Concomitant]
     Active Substance: SIMVASTATIN
     Indication: PRODUCT USED FOR UNKNOWN INDICATION
  16. QUETIAPINE MYLAN [Suspect]
     Active Substance: QUETIAPINE
     Indication: PRODUCT USED FOR UNKNOWN INDICATION
     Dosage: 12.5 MILLIGRAM
     Route: 048
  17. QUETIAPINE MYLAN [Suspect]
     Active Substance: QUETIAPINE
     Dosage: 25 MILLIGRAM
     Route: 048
  18. QUETIAPINE MYLAN [Suspect]
     Active Substance: QUETIAPINE
     Dosage: 50 MILLIGRAM, QD
     Route: 065
  19. ROPINIROLE. [Concomitant]
     Active Substance: ROPINIROLE
     Indication: PARKINSON^S DISEASE
     Dosage: 8 MILLIGRAM, QD
  20. SERTRALIN [Concomitant]
     Active Substance: SERTRALINE HYDROCHLORIDE
     Indication: DYSPHORIA
  21. SERTRALINE [Concomitant]
     Active Substance: SERTRALINE HYDROCHLORIDE
     Indication: PRODUCT USED FOR UNKNOWN INDICATION
     Dosage: 150 MILLIGRAM, QD
     Route: 065
  22. LEVODOPA [Concomitant]
     Active Substance: LEVODOPA
     Indication: PRODUCT USED FOR UNKNOWN INDICATION
     Dosage: 750 MILLIGRAM, QD
  23. METOPROLOL. [Concomitant]
     Active Substance: METOPROLOL
     Indication: CARDIAC FAILURE

REACTIONS (13)
  - Delusion [Recovered/Resolved]
  - Depression [Unknown]
  - Weight decreased [Unknown]
  - Hallucination, visual [Recovered/Resolved]
  - Sedation [Recovered/Resolved]
  - Dysphoria [Recovered/Resolved]
  - Parkinson^s disease [Unknown]
  - Hypotension [Recovered/Resolved]
  - Drug effect incomplete [Unknown]
  - Psychotic behaviour [Unknown]
  - Gait disturbance [Recovering/Resolving]
  - Intentional product use issue [Unknown]
  - Aggression [Unknown]
